FAERS Safety Report 7790475-2 (Version None)
Quarter: 2011Q3

REPORT INFORMATION
  Report Type: 
  Country: None (occurrence: None)
  Receive Date: 20110930
  Receipt Date: 20110919
  Transmission Date: 20111222
  Serious: Yes (Hospitalization, Other)
  Sender: FDA-Public Use
  Company Number: PHHY2011KE83565

PATIENT
  Sex: Female

DRUGS (1)
  1. CYCLOSPORINE [Suspect]
     Dosage: UNK UKN, UNK
     Route: 064

REACTIONS (8)
  - FOETAL GROWTH RESTRICTION [None]
  - PARTIAL SEIZURES [None]
  - SMALL FOR DATES BABY [None]
  - HYPOXIC-ISCHAEMIC ENCEPHALOPATHY [None]
  - MATERNAL EXPOSURE DURING PREGNANCY [None]
  - CEREBRAL VENTRICLE DILATATION [None]
  - MICROCEPHALY [None]
  - GROWTH RETARDATION [None]
